FAERS Safety Report 6836911-7 (Version None)
Quarter: 2010Q3

REPORT INFORMATION
  Report Type: 
  Country: None (occurrence: None)
  Receive Date: 20100713
  Receipt Date: 20070502
  Transmission Date: 20110219
  Serious: No
  Sender: FDA-Public Use
  Company Number: US-PFIZER INC-2007036141

PATIENT
  Sex: Male
  Weight: 79.545 kg

DRUGS (2)
  1. CHANTIX [Suspect]
     Indication: SMOKING CESSATION THERAPY
     Route: 048
     Dates: start: 20061201
  2. CARDIOVASCULAR SYSTEM DRUGS [Concomitant]
     Route: 048

REACTIONS (2)
  - FLATULENCE [None]
  - NAUSEA [None]
